FAERS Safety Report 9688626 (Version 2)
Quarter: 2013Q4

REPORT INFORMATION
  Report Type: Spontaneous
  Country: BR (occurrence: BR)
  Receive Date: 20131114
  Receipt Date: 20131114
  Transmission Date: 20140711
  Serious: Yes (Other)
  Sender: FDA-Public Use
  Company Number: BR-PFIZER INC-2013314534

PATIENT
  Sex: Female

DRUGS (1)
  1. FRONTAL [Suspect]
     Dosage: 1 MG, UNK
     Route: 048

REACTIONS (8)
  - Retinal tear [Unknown]
  - Photopsia [Unknown]
  - Vitreous disorder [Unknown]
  - Palpitations [Unknown]
  - Extrasystoles [Unknown]
  - Dry mouth [Unknown]
  - Headache [Unknown]
  - Migraine [Unknown]
